FAERS Safety Report 14281388 (Version 1)
Quarter: 2017Q4

REPORT INFORMATION
  Report Type: Spontaneous
  Country: US (occurrence: US)
  Receive Date: 20171213
  Receipt Date: 20171213
  Transmission Date: 20180321
  Serious: No
  Sender: FDA-Public Use
  Company Number: US-PFIZER INC-2017533062

PATIENT
  Age: 11 Year
  Sex: Female

DRUGS (1)
  1. EUCRISA [Suspect]
     Active Substance: CRISABOROLE
     Dosage: 1 APPLICATION ON THE SKIN DAILY
     Route: 061
     Dates: start: 20171211, end: 20171211

REACTIONS (2)
  - Burning sensation [Unknown]
  - Rash macular [Unknown]
